FAERS Safety Report 20813605 (Version 1)
Quarter: 2022Q2

REPORT INFORMATION
  Report Type: Report from Study
  Country: US (occurrence: None)
  Receive Date: 20220511
  Receipt Date: 20220511
  Transmission Date: 20220720
  Serious: Yes (Other)
  Sender: FDA-Public Use
  Company Number: US-ROCHE-3040418

PATIENT
  Age: 81 Year
  Sex: Female
  Weight: 79.5 kg

DRUGS (2)
  1. ATEZOLIZUMAB [Suspect]
     Active Substance: ATEZOLIZUMAB
     Indication: Lung adenocarcinoma
     Dosage: DATE LAST ADMINISTERED 23/JUN/2021
     Route: 041
     Dates: start: 20210623
  2. COBIMETINIB [Suspect]
     Active Substance: COBIMETINIB
     Indication: Lung adenocarcinoma
     Dosage: DATE LAST ADMINISTERED 08/JUL/2021
     Route: 048
     Dates: start: 20210623

REACTIONS (2)
  - Dermatitis acneiform [Recovering/Resolving]
  - Rash maculo-papular [Unknown]

NARRATIVE: CASE EVENT DATE: 20210708
